FAERS Safety Report 6518450-6 (Version None)
Quarter: 2009Q4

REPORT INFORMATION
  Report Type: 
  Country: None (occurrence: None)
  Receive Date: 20091225
  Receipt Date: 20091120
  Transmission Date: 20100525
  Serious: No
  Sender: FDA-Public Use
  Company Number: US-BAYER-200941604NA

PATIENT
  Sex: Female

DRUGS (1)
  1. MIRENA [Suspect]
     Indication: DRUG USE FOR UNKNOWN INDICATION
     Dosage: CONTINUOUS
     Route: 015
     Dates: start: 20091107

REACTIONS (5)
  - ABDOMINAL PAIN [None]
  - FEELING HOT [None]
  - PREMENSTRUAL SYNDROME [None]
  - RHINORRHOEA [None]
  - VOMITING [None]
